FAERS Safety Report 7513379-9 (Version None)
Quarter: 2011Q2

REPORT INFORMATION
  Report Type: 
  Country: None (occurrence: None)
  Receive Date: 20110525
  Receipt Date: 20110525
  Transmission Date: 20111010
  Serious: Yes (Other)
  Sender: FDA-Public Use
  Company Number: None

PATIENT
  Sex: Female
  Weight: 80.7403 kg

DRUGS (1)
  1. BONIVA [Suspect]
     Indication: OSTEOGENESIS IMPERFECTA
     Dosage: 1 MONTH JAN 13 UNITS HAV 103
     Dates: start: 20110113, end: 20110513

REACTIONS (10)
  - ARTHRALGIA [None]
  - PAIN IN EXTREMITY [None]
  - DIARRHOEA [None]
  - ABDOMINAL PAIN UPPER [None]
  - BONE PAIN [None]
  - SWELLING [None]
  - MYALGIA [None]
  - MUSCLE SPASMS [None]
  - HYPOAESTHESIA [None]
  - FLATULENCE [None]
